FAERS Safety Report 8429807-0 (Version None)
Quarter: 2012Q2

REPORT INFORMATION
  Report Type: 
  Country: None (occurrence: None)
  Receive Date: 20120323
  Receipt Date: 20110413
  Transmission Date: 20120825
  Serious: Yes (Hospitalization, Other)
  Sender: FDA-Public Use
  Company Number: 163-21880-11022643

PATIENT
  Age: 71 Year
  Sex: Male

DRUGS (16)
  1. OXYCONTIN [Concomitant]
  2. REVLIMID [Suspect]
     Indication: MULTIPLE MYELOMA
     Dosage: 25 MG, 1 IN 1 D, PO ; 20 MG, DAILY, PO
     Route: 048
     Dates: start: 20101119
  3. REVLIMID [Suspect]
     Indication: MULTIPLE MYELOMA
     Dosage: 25 MG, 1 IN 1 D, PO ; 20 MG, DAILY, PO
     Route: 048
     Dates: start: 20110411
  4. JANUVIA [Concomitant]
  5. ZOMETA [Concomitant]
  6. LISINOPRIL [Concomitant]
  7. PHYTONADIONE [Concomitant]
  8. METFFORMIN HYDROCHLORIDE [Concomitant]
  9. LASIX [Concomitant]
  10. METOPROLOL TARTRATE [Concomitant]
  11. ZOLPIDEM [Concomitant]
  12. DOCUSATE (DOCUSATE) [Concomitant]
  13. ONDANSETRON [Concomitant]
  14. DECADRON [Concomitant]
  15. INSULIN LISPRO (INSULIN LISPRO) [Concomitant]
  16. ACETAMINOPHEN [Concomitant]

REACTIONS (2)
  - PANCYTOPENIA [None]
  - DEEP VEIN THROMBOSIS [None]
